FAERS Safety Report 7804493-9 (Version None)
Quarter: 2011Q4

REPORT INFORMATION
  Report Type: 
  Country: None (occurrence: None)
  Receive Date: 20111010
  Receipt Date: 20110927
  Transmission Date: 20120403
  Serious: Yes (Other)
  Sender: FDA-Public Use
  Company Number: PHHY2011BR86769

PATIENT
  Sex: Male

DRUGS (2)
  1. EXFORGE [Suspect]
     Dosage: 320 MG VALS AND 5 MG AMLO
  2. DIOVAN [Suspect]

REACTIONS (2)
  - FORMICATION [None]
  - RENAL ARTERY OCCLUSION [None]
